FAERS Safety Report 9936679 (Version 1)
Quarter: 2014Q1

REPORT INFORMATION
  Report Type: Spontaneous
  Country: US (occurrence: US)
  Receive Date: 20140228
  Receipt Date: 20140228
  Transmission Date: 20141002
  Serious: No
  Sender: FDA-Public Use
  Company Number: US-SANOFI-AVENTIS-2013SA093214

PATIENT
  Sex: Male

DRUGS (3)
  1. DIABETA [Suspect]
  2. METFORMIN [Suspect]
  3. GLYBURIDE [Concomitant]

REACTIONS (3)
  - Stress [Unknown]
  - Blood glucose increased [Unknown]
  - Depression [Unknown]
